FAERS Safety Report 18328715 (Version 1)
Quarter: 2020Q3

REPORT INFORMATION
  Report Type: Spontaneous
  Country: US (occurrence: US)
  Receive Date: 20200929
  Receipt Date: 20200929
  Transmission Date: 20201103
  Serious: No
  Sender: FDA-Public Use
  Company Number: None

PATIENT
  Age: 87 Year
  Sex: Male
  Weight: 87 kg

DRUGS (22)
  1. LIVER CLEANSE [Concomitant]
  2. DANDELION THISTLE [Concomitant]
  3. LEUKERAN [Suspect]
     Active Substance: CHLORAMBUCIL
     Indication: CHRONIC LYMPHOCYTIC LEUKAEMIA
     Dosage: ?          OTHER FREQUENCY:D1 AND D15;?
     Route: 048
     Dates: start: 20200914, end: 20200915
  4. PANTOPRAZOLE 40MG [Concomitant]
     Active Substance: PANTOPRAZOLE SODIUM
  5. METOPROLOL 50MG [Concomitant]
     Active Substance: METOPROLOL
  6. IRON 27 [Concomitant]
  7. CRANBERRY. [Concomitant]
     Active Substance: CRANBERRY
  8. RASPBERRY CONCENTRATE [Concomitant]
  9. SUPER GREENS [Concomitant]
     Active Substance: DIETARY SUPPLEMENT
  10. ASPIRIN 81 [Concomitant]
     Active Substance: ASPIRIN
  11. GOLDEN SEAL [Concomitant]
     Active Substance: HERBALS\HOMEOPATHICS\GOLDENSEAL
  12. MILK THISTLE [Concomitant]
     Active Substance: DIETARY SUPPLEMENT\HERBALS\MILK THISTLE
  13. SIMVASTATIN 10MG [Concomitant]
     Active Substance: SIMVASTATIN
  14. GRAPE 2 [Concomitant]
  15. GARLIC. [Concomitant]
     Active Substance: GARLIC
  16. ECHINACEA [Concomitant]
     Active Substance: ECHINACEA, UNSPECIFIED
  17. C COMPLEX [Concomitant]
  18. VITAMIN C [Concomitant]
     Active Substance: ASCORBIC ACID
  19. MULTIVITAMIN [Concomitant]
     Active Substance: VITAMINS
  20. TEA [Concomitant]
     Active Substance: TEA LEAF
  21. VITAMIN B1 [Concomitant]
     Active Substance: THIAMINE HYDROCHLORIDE
  22. COD LIVER OIL [Concomitant]
     Active Substance: COD LIVER OIL

REACTIONS (2)
  - Dyspnoea [None]
  - Tremor [None]

NARRATIVE: CASE EVENT DATE: 20200915
